FAERS Safety Report 5795526-2 (Version None)
Quarter: 2008Q2

REPORT INFORMATION
  Report Type: 
  Country: None (occurrence: None)
  Receive Date: 20080630
  Receipt Date: 20080617
  Transmission Date: 20081010
  Serious: Yes (Hospitalization, Other)
  Sender: FDA-Public Use
  Company Number: PHHY2008JP11472

PATIENT

DRUGS (3)
  1. NEORAL [Suspect]
     Indication: NEPHROTIC SYNDROME
     Dosage: 100MG/DAY
     Route: 048
     Dates: start: 20080131, end: 20080303
  2. NEORAL [Suspect]
     Dosage: 75 MG/DAY
     Route: 048
     Dates: start: 20080304, end: 20080312
  3. TAMIFLU [Concomitant]
     Dosage: UNK
     Dates: start: 20080229, end: 20080304

REACTIONS (4)
  - INFLUENZA [None]
  - PARAESTHESIA [None]
  - URETERAL CATHETERISATION [None]
  - URINARY RETENTION [None]
